FAERS Safety Report 4662585-X (Version None)
Quarter: 2005Q2

REPORT INFORMATION
  Report Type: 
  Country: None (occurrence: None)
  Receive Date: 20050513
  Receipt Date: 20050513
  Transmission Date: 20051028
  Serious: Yes (Life-Threatening, Hospitalization)
  Sender: FDA-Public Use
  Company Number: None

PATIENT
  Age: 68 Year
  Sex: Female

DRUGS (1)
  1. CIPROFLOXACIN [Suspect]
     Indication: UPPER RESPIRATORY TRACT INFECTION
     Dosage: ORAL
     Route: 048
     Dates: start: 20041126, end: 20041128

REACTIONS (3)
  - ANURIA [None]
  - HAEMODIALYSIS [None]
  - RENAL FAILURE ACUTE [None]
